FAERS Safety Report 20187712 (Version 3)
Quarter: 2022Q1

REPORT INFORMATION
  Report Type: Spontaneous
  Country: GB (occurrence: GB)
  Receive Date: 20211215
  Receipt Date: 20220317
  Transmission Date: 20220423
  Serious: Yes (Life-Threatening, Hospitalization)
  Sender: FDA-Public Use
  Company Number: GB-ELI_LILLY_AND_COMPANY-GB202112004318

PATIENT
  Sex: Female
  Weight: 74 kg

DRUGS (1)
  1. TRULICITY [Suspect]
     Active Substance: DULAGLUTIDE
     Indication: Product used for unknown indication
     Dosage: UNK MG, UNKNOWN
     Route: 058
     Dates: start: 20210803

REACTIONS (5)
  - Atrial fibrillation [Recovering/Resolving]
  - Atrial fibrillation [Recovering/Resolving]
  - Erythema [Recovered/Resolved]
  - Feeling abnormal [Unknown]
  - Pruritus [Unknown]
